FAERS Safety Report 6443372-9 (Version None)
Quarter: 2009Q4

REPORT INFORMATION
  Report Type: 
  Country: None (occurrence: None)
  Receive Date: 20091117
  Receipt Date: 20091110
  Transmission Date: 20100525
  Serious: Yes (Hospitalization, Other)
  Sender: FDA-Public Use
  Company Number: US-BAYER-200916542BCC

PATIENT
  Age: 49 Year
  Sex: Female

DRUGS (3)
  1. ASPIRIN [Suspect]
     Indication: ANGIOPLASTY
     Route: 065
     Dates: start: 20091001, end: 20091001
  2. DASATINIB [Suspect]
     Indication: CHRONIC MYELOID LEUKAEMIA
     Dosage: TOTAL DAILY DOSE: 80 MG
     Route: 048
     Dates: start: 20060224
  3. PLAVIX [Suspect]
     Indication: ANGIOPLASTY
     Route: 065
     Dates: start: 20091001

REACTIONS (2)
  - CATHETER SITE HAEMORRHAGE [None]
  - RECTAL HAEMORRHAGE [None]
